FAERS Safety Report 6268474-1 (Version None)
Quarter: 2009Q3

REPORT INFORMATION
  Report Type: 
  Country: None (occurrence: None)
  Receive Date: 20090715
  Receipt Date: 20090708
  Transmission Date: 20100115
  Serious: Yes (Hospitalization, Other)
  Sender: FDA-Public Use
  Company Number: CA-ABBOTT-08P-028-0486094-00

PATIENT
  Sex: Female
  Weight: 81.72 kg

DRUGS (12)
  1. HUMIRA [Suspect]
     Indication: CROHN'S DISEASE
     Route: 058
     Dates: start: 20071019, end: 20080919
  2. HUMIRA [Suspect]
     Dates: start: 20090626
  3. WELLBUTRIN XL [Concomitant]
     Indication: DRUG USE FOR UNKNOWN INDICATION
  4. IRON [Concomitant]
     Indication: DRUG USE FOR UNKNOWN INDICATION
  5. NEXIUM [Concomitant]
     Indication: DRUG USE FOR UNKNOWN INDICATION
  6. YASMIN [Concomitant]
     Indication: DRUG USE FOR UNKNOWN INDICATION
     Route: 048
  7. MS CONTIN [Concomitant]
     Indication: ABDOMINAL PAIN
  8. MS CONTIN [Concomitant]
     Route: 048
  9. ELAVIL [Concomitant]
     Indication: DRUG USE FOR UNKNOWN INDICATION
  10. EFFEXOR [Concomitant]
     Indication: DRUG USE FOR UNKNOWN INDICATION
  11. APO-NITROFURANTOIN [Concomitant]
     Indication: CYSTITIS NONINFECTIVE
  12. CENTRUM FORTE [Concomitant]
     Indication: DRUG USE FOR UNKNOWN INDICATION

REACTIONS (6)
  - ANAL ABSCESS [None]
  - CLOSTRIDIUM DIFFICILE COLITIS [None]
  - ORAL CAVITY FISTULA [None]
  - SINUSITIS [None]
  - TOOTH ABSCESS [None]
  - TOOTH EXTRACTION [None]
